FAERS Safety Report 10101624 (Version 3)
Quarter: 2015Q3

REPORT INFORMATION
  Report Type: Report from Study
  Country: FR (occurrence: FR)
  Receive Date: 20140424
  Receipt Date: 20150911
  Transmission Date: 20151125
  Serious: Yes (Hospitalization, Other)
  Sender: FDA-Public Use
  Company Number: FR-ROCHE-1382754

PATIENT
  Sex: Male
  Weight: 78 kg

DRUGS (14)
  1. LORAMYC [Concomitant]
     Active Substance: MICONAZOLE
     Route: 065
  2. CORDARONE [Concomitant]
     Active Substance: AMIODARONE HYDROCHLORIDE
  3. CLONAZEPAM. [Suspect]
     Active Substance: CLONAZEPAM
     Indication: MALIGNANT LYMPHOID NEOPLASM
     Route: 042
     Dates: start: 20130814, end: 20130819
  4. BUSILVEX [Suspect]
     Active Substance: BUSULFAN
     Indication: MALIGNANT LYMPHOID NEOPLASM
     Route: 042
     Dates: start: 20130817, end: 20130818
  5. BUSILVEX [Suspect]
     Active Substance: BUSULFAN
     Route: 042
     Dates: start: 20130819, end: 20130819
  6. THIOTEPA. [Suspect]
     Active Substance: THIOTEPA
     Indication: MALIGNANT LYMPHOID NEOPLASM
     Route: 042
     Dates: start: 20130814, end: 20130816
  7. RITUXIMAB [Suspect]
     Active Substance: RITUXIMAB
     Indication: MALIGNANT LYMPHOID NEOPLASM
     Route: 042
     Dates: start: 20130430, end: 20130716
  8. LEXOMIL [Concomitant]
     Active Substance: BROMAZEPAM
     Dosage: AT REQUEST
     Route: 065
  9. ENDOXAN [Suspect]
     Active Substance: CYCLOPHOSPHAMIDE
     Indication: MALIGNANT LYMPHOID NEOPLASM
     Route: 042
     Dates: start: 20130820, end: 20130821
  10. KEPPRA [Concomitant]
     Active Substance: LEVETIRACETAM
     Route: 065
  11. DIGOXINE [Concomitant]
     Active Substance: DIGOXIN
  12. CLONAZEPAM. [Suspect]
     Active Substance: CLONAZEPAM
     Dosage: DOSE ADMINISTERED WAS 4 680 MG AND CUMULATIVE DOSE SINCE FIRST ADMINSTRATION WAS 9 360 MG.
     Route: 042
     Dates: start: 20130820, end: 20130821
  13. UROMITEXAN [Suspect]
     Active Substance: MESNA
     Indication: MALIGNANT LYMPHOID NEOPLASM
     Route: 065
  14. MOTILIUM [Concomitant]
     Active Substance: DOMPERIDONE
     Dosage: AT REQUEST
     Route: 065

REACTIONS (3)
  - Lung disorder [Recovered/Resolved]
  - Intestinal obstruction [Recovering/Resolving]
  - Neutropenic colitis [Recovering/Resolving]

NARRATIVE: CASE EVENT DATE: 20130901
